FAERS Safety Report 7407373-6 (Version None)
Quarter: 2011Q2

REPORT INFORMATION
  Report Type: 
  Country: None (occurrence: None)
  Receive Date: 20110411
  Receipt Date: 20110328
  Transmission Date: 20111010
  Serious: Yes (Hospitalization)
  Sender: FDA-Public Use
  Company Number: US-GENENTECH-316212

PATIENT
  Age: 11 Year
  Sex: Female

DRUGS (16)
  1. METHYLPREDNISOLONE [Suspect]
     Indication: IMMUNOSUPPRESSION
     Dosage: UNK
     Route: 065
  2. GAMUNEX [Concomitant]
     Indication: PRODUCT USED FOR UNKNOWN INDICATION
     Dosage: UNK
  3. INFLUENZA VACCINATION [Concomitant]
     Indication: ANTIVIRAL PROPHYLAXIS
     Dosage: UNK
     Dates: start: 20091105
  4. OSELTAMIVIR [Suspect]
     Indication: H1N1 INFLUENZA
     Dosage: UNK
     Route: 048
     Dates: start: 20090101
  5. VALGANCICLOVIR [Concomitant]
     Indication: PROPHYLAXIS
     Dosage: UNK
  6. MYCOPHENOLATE MOFETIL [Suspect]
     Indication: IMMUNOSUPPRESSION
     Dosage: UNK
     Route: 065
  7. SIROLIMUS [Suspect]
     Indication: IMMUNOSUPPRESSION
     Dosage: 1 MG, BID
     Route: 065
     Dates: start: 20090101
  8. AZATHIOPRINE [Suspect]
     Indication: IMMUNOSUPPRESSION
     Dosage: UNK
     Route: 065
  9. TACROLIMUS [Suspect]
     Indication: IMMUNOSUPPRESSION
     Dosage: 2 MG, BID
     Route: 065
  10. AMOXICILLIN AND CLAVULANATE POTASSIUM [Concomitant]
     Indication: PRODUCT USED FOR UNKNOWN INDICATION
     Dosage: UNK
  11. CEFTRIAXONE [Concomitant]
     Indication: PRODUCT USED FOR UNKNOWN INDICATION
     Dosage: 50 MG/KG, UNK
     Route: 042
  12. RITUXIMAB [Suspect]
     Indication: PRODUCT USED FOR UNKNOWN INDICATION
     Dosage: 600 MG/M2, UNK
     Route: 042
  13. PREDNISONE [Suspect]
     Indication: IMMUNOSUPPRESSION
     Dosage: 6 MG, QOD
     Route: 065
  14. TACROLIMUS [Suspect]
     Dosage: UNK
     Route: 065
  15. OSELTAMIVIR [Suspect]
     Dosage: 60 MG, BID
     Route: 048
     Dates: start: 20090101
  16. TRIMETHOPRIM/SULFAMETHOXAZOLE FORTE [Concomitant]
     Indication: PROPHYLAXIS
     Dosage: UNK

REACTIONS (4)
  - H1N1 INFLUENZA [None]
  - PNEUMONIA [None]
  - DRUG INEFFECTIVE [None]
  - PATHOGEN RESISTANCE [None]
